FAERS Safety Report 18414737 (Version 1)
Quarter: 2020Q4

REPORT INFORMATION
  Report Type: Spontaneous
  Country: US (occurrence: US)
  Receive Date: 20201022
  Receipt Date: 20201022
  Transmission Date: 20210114
  Serious: No
  Sender: FDA-Public Use
  Company Number: None

PATIENT
  Age: 6 Year
  Sex: Male

DRUGS (1)
  1. TAFINLAR [Suspect]
     Active Substance: DABRAFENIB MESYLATE
     Route: 048

REACTIONS (6)
  - Product administration error [None]
  - Diarrhoea [None]
  - Pyrexia [None]
  - Incorrect dose administered [None]
  - Chills [None]
  - Liver function test increased [None]

NARRATIVE: CASE EVENT DATE: 20201014
